FAERS Safety Report 10149161 (Version 1)
Quarter: 2014Q2

REPORT INFORMATION
  Report Type: Spontaneous
  Country: GB (occurrence: None)
  Receive Date: 20140430
  Receipt Date: 20140430
  Transmission Date: 20141212
  Serious: Yes (Hospitalization)
  Sender: FDA-Public Use
  Company Number: AUR-APL-2014-05113

PATIENT
  Age: 74 Year
  Sex: Male

DRUGS (12)
  1. CLOPIDOGREL [Suspect]
     Indication: PRODUCT USED FOR UNKNOWN INDICATION
     Dates: start: 20051013
  2. ACETYLSALICYLIC ACID [Suspect]
     Indication: CARDIOVASCULAR DISORDER
     Dates: start: 19980511
  3. ALISKIREN [Suspect]
     Indication: CARDIOVASCULAR DISORDER
     Route: 048
     Dates: start: 20090713, end: 20101018
  4. AMLODIPINE (AMODIPINE) [Concomitant]
  5. BISOPROLOL (BISOPROLOL) [Concomitant]
  6. DOXAZOSIN (DOXAZOSIN) [Concomitant]
  7. FRUSEMIDE (FUROSEMIDE) [Concomitant]
  8. HUMAN INSULATARD (INSULIN HUMAN INJECTION, ISOPHANE) [Concomitant]
  9. HYDROCHLOROTHIAZIDE (HYDROCHLOROTHIAZIDE) [Concomitant]
  10. IRBESARTAN (IRBESARTAN) [Concomitant]
  11. METFORMIN (METFORMIN) [Concomitant]
  12. PRAVASTATIN (PRAVASTATIN) [Concomitant]

REACTIONS (7)
  - Angina pectoris [None]
  - Concomitant disease progression [None]
  - Myocardial ischaemia [None]
  - Atrioventricular block first degree [None]
  - Bundle branch block left [None]
  - Procedural haemorrhage [None]
  - Implant site haematoma [None]
